FAERS Safety Report 13356113 (Version 1)
Quarter: 2017Q1

REPORT INFORMATION
  Report Type: Report from Study
  Country: VE (occurrence: VE)
  Receive Date: 20170321
  Receipt Date: 20170321
  Transmission Date: 20170429
  Serious: Yes (Hospitalization)
  Sender: FDA-Public Use
  Company Number: PHHY2017VE041820

PATIENT
  Age: 2 Year
  Sex: Male

DRUGS (4)
  1. FOLIC ACID. [Concomitant]
     Active Substance: FOLIC ACID
     Indication: ANAEMIA
     Dosage: 10 UNK, QD (UNIT: CC)
     Route: 065
  2. LETISAN [Concomitant]
     Indication: HAEMOGLOBIN DECREASED
     Dosage: UNK UNK, QD
     Route: 065
  3. EXJADE [Suspect]
     Active Substance: DEFERASIROX
     Indication: ANAEMIA
     Dosage: 125 MG, QD
     Route: 048
     Dates: start: 20150101
  4. SINTISONE [Concomitant]
     Indication: HAEMOGLOBIN DECREASED
     Dosage: 6 DF, QD
     Route: 048

REACTIONS (4)
  - Condition aggravated [Unknown]
  - Haemoglobin decreased [Unknown]
  - Iron overload [Unknown]
  - Infection [Unknown]

NARRATIVE: CASE EVENT DATE: 201702
